FAERS Safety Report 11223101 (Version 1)
Quarter: 2015Q2

REPORT INFORMATION
  Report Type: Spontaneous
  Country: US (occurrence: US)
  Receive Date: 20150626
  Receipt Date: 20150626
  Transmission Date: 20150821
  Serious: Yes (Other)
  Sender: FDA-Public Use
  Company Number: US-BAUSCH-BL-2015-015822

PATIENT
  Age: 67 Year
  Sex: Female

DRUGS (1)
  1. CARAC [Suspect]
     Active Substance: FLUOROURACIL
     Indication: ACTINIC KERATOSIS
     Route: 061

REACTIONS (1)
  - Keratoacanthoma [Recovered/Resolved]
